FAERS Safety Report 21629375 (Version 1)
Quarter: 2022Q4

REPORT INFORMATION
  Report Type: Spontaneous
  Country: US (occurrence: US)
  Receive Date: 20221122
  Receipt Date: 20221122
  Transmission Date: 20230113
  Serious: Yes (Hospitalization)
  Sender: FDA-Public Use
  Company Number: US-HALEON-USCH2022GSK043356

PATIENT
  Age: 76 Year
  Sex: Male

DRUGS (1)
  1. TUMS [Suspect]
     Active Substance: CALCIUM CARBONATE
     Indication: Gastrooesophageal reflux disease
     Dosage: UNK (8 TO 9 TABLETS DAILY FOR FEW DAYS)

REACTIONS (4)
  - Hypercalcaemia [Recovered/Resolved]
  - Somnolence [Unknown]
  - Dry mouth [Unknown]
  - Product use in unapproved indication [Unknown]
